FAERS Safety Report 6360056-6 (Version None)
Quarter: 2009Q3

REPORT INFORMATION
  Report Type: 
  Country: None (occurrence: None)
  Receive Date: 20090917
  Receipt Date: 20090909
  Transmission Date: 20100115
  Serious: Yes (Hospitalization, Other)
  Sender: FDA-Public Use
  Company Number: PHHY2009CA37640

PATIENT
  Age: 67 Year
  Sex: Male
  Weight: 125.62 kg

DRUGS (13)
  1. RASILEZ [Suspect]
     Indication: HYPERTENSION
     Dosage: 150 MG /DAY
     Route: 048
     Dates: start: 20090805, end: 20090824
  2. RASILEZ [Suspect]
     Indication: PROPHYLAXIS
  3. ACTONEL [Concomitant]
     Dosage: 1 TABLET ONCE WEEKLY
  4. MAVIK [Concomitant]
     Indication: HYPERTENSION
     Dosage: 1 CAPSULE DAILY
  5. HYDROCHLOROTHIAZIDE [Concomitant]
     Indication: DIURETIC THERAPY
     Dosage: 1 TABLET ONCE DAILY
  6. DIGOXIN [Concomitant]
     Dosage: 1 TABLET ONCE DAILY
  7. NOVORAPID [Concomitant]
     Indication: DIABETES MELLITUS
     Dosage: USE AS DIRECTED
  8. LEVEMIR [Concomitant]
     Indication: DIABETES MELLITUS
     Dosage: USE AS DIRECTED
  9. METOPROLOL SUCCINATE [Concomitant]
     Dosage: 1 TABLET TWICE DAILY
  10. NITROLINGUAL PUMPSPRAY [Concomitant]
     Dosage: USE ON OR UNDER THE TONGUE AS DIRECTED
  11. ALLOPURINOL [Concomitant]
     Dosage: 1 TABLET ONCE DAILY
  12. APO-METFORMIN [Concomitant]
     Indication: DIABETES MELLITUS
     Dosage: 1 TABLET TWICE DAILY
  13. ASPIRIN [Concomitant]
     Indication: ANALGESIC THERAPY
     Dosage: 1 TABLET ONCE DAILY

REACTIONS (3)
  - BLOOD PRESSURE ABNORMAL [None]
  - CHEST PAIN [None]
  - HEART RATE ABNORMAL [None]
